FAERS Safety Report 8213500-3 (Version None)
Quarter: 2012Q1

REPORT INFORMATION
  Report Type: 
  Country: None (occurrence: None)
  Receive Date: 20120315
  Receipt Date: 20120309
  Transmission Date: 20120608
  Serious: Yes (Other)
  Sender: FDA-Public Use
  Company Number: JP-MERCK-1203USA01717

PATIENT
  Age: 70 Year
  Sex: Female

DRUGS (4)
  1. METHYCOBAL [Concomitant]
     Route: 048
     Dates: start: 20120206, end: 20120215
  2. PEPCID RPD [Suspect]
     Route: 048
     Dates: start: 20120206, end: 20120215
  3. CELECOXIB [Suspect]
     Route: 048
     Dates: start: 20120206, end: 20120215
  4. SELTOUCH [Concomitant]
     Route: 065
     Dates: start: 20120206, end: 20120215

REACTIONS (1)
  - DRUG ERUPTION [None]
